FAERS Safety Report 7914468 (Version 2)
Quarter: 2012Q4

REPORT INFORMATION
  Report Type: Spontaneous
  Country: US (occurrence: None)
  Receive Date: 20110405
  Receipt Date: 20121017
  Transmission Date: 20130627
  Serious: Yes (Death, Other)
  Sender: FDA-Public Use
  Company Number: 2011MA002781

PATIENT
  Sex: Male
  Weight: 120.2 kg

DRUGS (9)
  1. METOCLOPRAMIDE [Suspect]
     Indication: DIABETIC GASTROPARESIS
     Dates: start: 200511, end: 201012
  2. LISINOPRIL [Concomitant]
  3. LEVAQUIN [Concomitant]
  4. PROZAC [Concomitant]
  5. NEPHROCAPS [Concomitant]
  6. PRILOSEC [Concomitant]
  7. NOVOLIN [Concomitant]
  8. SENSIPAR [Concomitant]
  9. SINEMET [Concomitant]

REACTIONS (12)
  - Injury [None]
  - Tardive dyskinesia [None]
  - Emotional disorder [None]
  - Ill-defined disorder [None]
  - Economic problem [None]
  - Family stress [None]
  - Polyneuropathy [None]
  - Amnesia [None]
  - Aspiration [None]
  - Areflexia [None]
  - Haemorrhagic stroke [None]
  - Brain herniation [None]
